FAERS Safety Report 7326717-7 (Version None)
Quarter: 2011Q1

REPORT INFORMATION
  Report Type: 
  Country: None (occurrence: None)
  Receive Date: 20110302
  Receipt Date: 20090812
  Transmission Date: 20110831
  Serious: No
  Sender: FDA-Public Use
  Company Number: US-PFIZER INC-2009254867

PATIENT

DRUGS (1)
  1. VFEND [Suspect]

REACTIONS (2)
  - INTENTIONAL DRUG MISUSE [None]
  - UNEVALUABLE EVENT [None]
